FAERS Safety Report 7213328-7 (Version None)
Quarter: 2011Q1

REPORT INFORMATION
  Report Type: 
  Country: None (occurrence: None)
  Receive Date: 20110106
  Receipt Date: 20101227
  Transmission Date: 20110831
  Serious: Yes (Hospitalization, Other)
  Sender: FDA-Public Use
  Company Number: GB-PFIZER INC-2010134349

PATIENT
  Sex: Male

DRUGS (4)
  1. DEXAMETHASONE [Suspect]
     Dosage: 0.025 MG, 1X/DAY
  2. LAMOTRIGINE [Suspect]
     Dosage: UNK
     Dates: end: 20100618
  3. KEPPRA [Suspect]
     Dosage: 2200 DF, 1000 MORNING, 1200 EVENING
  4. LYRICA [Suspect]
     Dosage: 15 MG, 2X/DAY
     Dates: end: 20101110

REACTIONS (10)
  - PSYCHOTIC DISORDER [None]
  - DIZZINESS [None]
  - CIRCULATORY COLLAPSE [None]
  - FATIGUE [None]
  - FEELING DRUNK [None]
  - INSOMNIA [None]
  - CONVULSION [None]
  - DISORIENTATION [None]
  - BONE DENSITY DECREASED [None]
  - NAUSEA [None]
